FAERS Safety Report 20406276 (Version 2)
Quarter: 2022Q1

REPORT INFORMATION
  Report Type: Spontaneous
  Country: PT (occurrence: PT)
  Receive Date: 20220131
  Receipt Date: 20220202
  Transmission Date: 20220423
  Serious: Yes (Other)
  Sender: FDA-Public Use
  Company Number: PT-BAYER-2022A014619

PATIENT
  Age: 74 Year
  Sex: Male

DRUGS (1)
  1. IOPROMIDE [Suspect]
     Active Substance: IOPROMIDE

REACTIONS (3)
  - Sialoadenitis [Recovered/Resolved]
  - Lymphadenopathy [Recovered/Resolved]
  - Neck pain [Recovered/Resolved]
